FAERS Safety Report 8976327 (Version 1)
Quarter: 2012Q4

REPORT INFORMATION
  Report Type: 
  Country: US (occurrence: US)
  Receive Date: 20121219
  Receipt Date: 20121219
  Transmission Date: 20130627
  Serious: No
  Sender: FDA-Public Use
  Company Number: US-AMGEN-USASP2012069359

PATIENT
  Age: 88 Year
  Sex: Female
  Weight: 61.68 kg

DRUGS (8)
  1. PROLIA [Suspect]
     Indication: OSTEOPOROSIS
     Dosage: 60 mg, q6mo
     Dates: start: 20120914
  2. ATENOLOL [Concomitant]
     Dosage: UNK
  3. DOXAZOSIN [Concomitant]
     Dosage: UNK
  4. ZYRTEC [Concomitant]
     Dosage: UNK
  5. VITAMIN D [Concomitant]
     Dosage: UNK
  6. GLUCOSAMINE [Concomitant]
     Dosage: UNK
  7. CHONDROITIN [Concomitant]
     Dosage: UNK
  8. CALCIUM [Concomitant]
     Dosage: UNK

REACTIONS (4)
  - Lip swelling [Recovered/Resolved]
  - Lip dry [Recovered/Resolved]
  - Hypoaesthesia oral [Recovered/Resolved]
  - Lip exfoliation [Recovered/Resolved]
